FAERS Safety Report 7202068-6 (Version None)
Quarter: 2010Q4

REPORT INFORMATION
  Report Type: 
  Country: None (occurrence: None)
  Receive Date: 20101220
  Receipt Date: 20101207
  Transmission Date: 20110411
  Serious: Yes (Hospitalization)
  Sender: FDA-Public Use
  Company Number: 2010MA003575

PATIENT
  Age: 29 Year
  Sex: Male
  Weight: 78.9259 kg

DRUGS (2)
  1. DONEPEZIL HYDROCHLORIDE [Suspect]
     Dosage: 23 MG
     Dates: start: 20100917
  2. ONDANSETRON [Concomitant]

REACTIONS (22)
  - ALCOHOL USE [None]
  - ANXIETY [None]
  - BONE FRAGMENTATION [None]
  - CRYING [None]
  - DYSURIA [None]
  - ERYTHEMA [None]
  - FIBULA FRACTURE [None]
  - INFECTION [None]
  - LACERATION [None]
  - MEMORY IMPAIRMENT [None]
  - OEDEMA PERIPHERAL [None]
  - OPEN WOUND [None]
  - PARAESTHESIA [None]
  - POST PROCEDURAL OEDEMA [None]
  - PROCEDURAL PAIN [None]
  - RESTLESSNESS [None]
  - SKIN INJURY [None]
  - SKIN NECROSIS [None]
  - TIBIA FRACTURE [None]
  - TRAUMATIC FRACTURE [None]
  - URINARY RETENTION [None]
  - VICTIM OF CRIME [None]
